FAERS Safety Report 10150708 (Version 3)
Quarter: 2014Q2

REPORT INFORMATION
  Report Type: Spontaneous
  Country: US (occurrence: US)
  Receive Date: 20140502
  Receipt Date: 20140624
  Transmission Date: 20141212
  Serious: Yes (Other)
  Sender: FDA-Public Use
  Company Number: US-BAYER-2014-064733

PATIENT
  Age: 22 Year
  Sex: Female
  Weight: 60.32 kg

DRUGS (1)
  1. MIRENA [Suspect]
     Indication: CONTRACEPTION
     Dosage: 20 MCG/24HR, CONT
     Route: 015
     Dates: start: 20130627, end: 20140414

REACTIONS (5)
  - Genital haemorrhage [None]
  - Device dislocation [None]
  - Abdominal pain lower [None]
  - Device physical property issue [None]
  - Device breakage [None]
